FAERS Safety Report 9624392 (Version 2)
Quarter: 2013Q4

REPORT INFORMATION
  Report Type: Spontaneous
  Country: US (occurrence: US)
  Receive Date: 20131015
  Receipt Date: 20131015
  Transmission Date: 20140711
  Serious: Yes (Other)
  Sender: FDA-Public Use
  Company Number: US-PFIZER INC-2006043652

PATIENT
  Age: 68 Year
  Sex: Female
  Weight: 144 kg

DRUGS (4)
  1. ACCUPRIL [Suspect]
     Indication: HYPERTENSION
     Dosage: 80 MG, 1X/DAY
     Route: 048
  2. METFORMIN HCL [Suspect]
     Dosage: UNK
     Route: 048
  3. LIPITOR [Concomitant]
     Dosage: UNK
  4. TRIAMTERENE AND HYDROCHLOROTHIAZID ^HARRIS^ [Concomitant]
     Dosage: UNK
     Route: 065

REACTIONS (5)
  - Breast cancer [Unknown]
  - Drug ineffective [Unknown]
  - Stress [Unknown]
  - Hyperphagia [Unknown]
  - Glycosylated haemoglobin increased [Unknown]
